FAERS Safety Report 20316448 (Version 1)
Quarter: 2022Q1

REPORT INFORMATION
  Report Type: Report from Study
  Country: EG (occurrence: EG)
  Receive Date: 20220110
  Receipt Date: 20220110
  Transmission Date: 20220424
  Serious: Yes (Other)
  Sender: FDA-Public Use
  Company Number: EG-NOVARTISPH-NVSC2022EG002685

PATIENT
  Age: 11 Year
  Sex: Female

DRUGS (4)
  1. OMNITROPE [Suspect]
     Active Substance: SOMATROPIN
     Indication: Growth hormone deficiency
     Dosage: 1.1 MG, QD (AND IT INCREASED UNTIL 2 MG /DAY DUE TO THE NORMAL GROWTH)
     Route: 058
     Dates: start: 202003
  2. OMNITROPE [Suspect]
     Active Substance: SOMATROPIN
     Dosage: 2 MG, QD
     Route: 058
     Dates: end: 202104
  3. ZINC [Concomitant]
     Active Substance: ZINC
     Indication: Malnutrition
     Dosage: 10 CM, QD (TAKEN IRREGULARLY, STOPPED FOR ABOUT 3 MONTHS)
     Route: 065
     Dates: start: 202001
  4. ZINC [Concomitant]
     Active Substance: ZINC
     Dosage: 5 CM, QD
     Route: 065

REACTIONS (3)
  - Vitamin D deficiency [Not Recovered/Not Resolved]
  - Tooth disorder [Not Recovered/Not Resolved]
  - Weight increased [Not Recovered/Not Resolved]

NARRATIVE: CASE EVENT DATE: 20200701
